FAERS Safety Report 6379449-6 (Version None)
Quarter: 2009Q3

REPORT INFORMATION
  Report Type: 
  Country: None (occurrence: None)
  Receive Date: 20090928
  Receipt Date: 20090918
  Transmission Date: 20100115
  Serious: Yes (Other)
  Sender: FDA-Public Use
  Company Number: B0585045A

PATIENT
  Sex: Male

DRUGS (5)
  1. REQUIP [Suspect]
     Indication: PARKINSON'S DISEASE
     Route: 048
     Dates: start: 20090407, end: 20090823
  2. NEODOPASOL [Concomitant]
     Indication: PARKINSON'S DISEASE
     Dosage: 750MG PER DAY
     Route: 048
     Dates: start: 20090309
  3. SELEGILINE HYDROCHLORIDE [Concomitant]
     Indication: PARKINSON'S DISEASE
     Dosage: 75MG PER DAY
     Route: 048
     Dates: start: 20090309
  4. MYSLEE [Concomitant]
     Indication: INSOMNIA
     Dosage: 10MG PER DAY
     Route: 048
     Dates: start: 20090309
  5. LENDORMIN [Concomitant]
     Indication: INSOMNIA
     Dosage: .25MG PER DAY
     Route: 048
     Dates: start: 20090309

REACTIONS (2)
  - FALL [None]
  - SUDDEN ONSET OF SLEEP [None]
